FAERS Safety Report 5406716-2 (Version None)
Quarter: 2007Q3

REPORT INFORMATION
  Report Type: 
  Country: None (occurrence: None)
  Receive Date: 20070806
  Receipt Date: 20070806
  Transmission Date: 20080115
  Serious: Yes (Other)
  Sender: FDA-Public Use
  Company Number: None

PATIENT
  Sex: Male
  Weight: 66.6788 kg

DRUGS (1)
  1. METHOCARBAMOL [Suspect]
     Indication: TORTICOLLIS
     Dosage: 750 MG TAB ONE EVERY FOUR HOU OTHER
     Dates: start: 20070726, end: 20070730

REACTIONS (1)
  - BLOOD GLUCOSE INCREASED [None]
